FAERS Safety Report 11308446 (Version 1)
Quarter: 2015Q3

REPORT INFORMATION
  Report Type: Spontaneous
  Country: US (occurrence: US)
  Receive Date: 20150724
  Receipt Date: 20150724
  Transmission Date: 20151125
  Serious: No
  Sender: FDA-Public Use
  Company Number: US-PFIZER INC-2015246393

PATIENT
  Sex: Female

DRUGS (2)
  1. CELEBREX [Suspect]
     Active Substance: CELECOXIB
     Dosage: 15 PILLS (6 MORE PILLS)
  2. CELEBREX [Suspect]
     Active Substance: CELECOXIB
     Dosage: 9 PILLS

REACTIONS (4)
  - Nausea [Unknown]
  - Ear congestion [Unknown]
  - Nasal congestion [Unknown]
  - Emotional disorder [Unknown]
